FAERS Safety Report 8246961 (Version 3)
Quarter: 2018Q4

REPORT INFORMATION
  Report Type: Report from Study
  Country: SE (occurrence: SE)
  Receive Date: 20111116
  Receipt Date: 20181109
  Transmission Date: 20190205
  Serious: Yes (Death)
  Sender: FDA-Public Use
  Company Number: SE-AMGEN-SWESP2011058944

PATIENT
  Age: 65 Year
  Sex: Female

DRUGS (4)
  1. PREDNISOLON [Concomitant]
     Active Substance: PREDNISOLONE
     Dosage: UNK
  2. ORUDIS [Concomitant]
     Active Substance: KETOPROFEN
     Dosage: UNK
  3. ETANERCEPT [Suspect]
     Active Substance: ETANERCEPT
     Indication: RHEUMATOID ARTHRITIS
     Dosage: 50 MG, WEEKLY
     Route: 058
     Dates: start: 20051215, end: 20110415
  4. METHOTREXATE PFIZER [Suspect]
     Active Substance: METHOTREXATE
     Indication: RHEUMATOID ARTHRITIS
     Dosage: 15 MG, WEEKLY
     Route: 048
     Dates: start: 20010309, end: 20110415

REACTIONS (1)
  - Malignant respiratory tract neoplasm [Fatal]

NARRATIVE: CASE EVENT DATE: 20110415
